FAERS Safety Report 20678479 (Version 1)
Quarter: 2022Q2

REPORT INFORMATION
  Report Type: Report from Study
  Country: FI (occurrence: FI)
  Receive Date: 20220406
  Receipt Date: 20220406
  Transmission Date: 20220721
  Serious: Yes (Hospitalization)
  Sender: FDA-Public Use
  Company Number: FI-MYLANLABS-2022M1024685

PATIENT
  Age: 76 Year
  Sex: Female

DRUGS (2)
  1. CLOZAPINE [Suspect]
     Active Substance: CLOZAPINE
     Indication: Product used for unknown indication
     Dosage: 400 MILLIGRAM, QD
     Dates: end: 202202
  2. CLOZAPINE [Suspect]
     Active Substance: CLOZAPINE
     Dosage: THE DOSE HAD GRADUALLY BEEN INCREASED TO THE PREVIOUS LEVEL

REACTIONS (1)
  - COVID-19 [Unknown]

NARRATIVE: CASE EVENT DATE: 20220201
